FAERS Safety Report 7135371-9 (Version None)
Quarter: 2010Q4

REPORT INFORMATION
  Report Type: 
  Country: None (occurrence: None)
  Receive Date: 20101203
  Receipt Date: 20101123
  Transmission Date: 20110411
  Serious: Yes (Other)
  Sender: FDA-Public Use
  Company Number: US-JNJCH-2010027436

PATIENT
  Sex: Male

DRUGS (1)
  1. LUBRIDERM ADVANCED THERAPY LOTION [Suspect]
     Indication: ACCIDENTAL EXPOSURE
     Dosage: TEXT:UNKNOWN
     Route: 047

REACTIONS (6)
  - ACCIDENTAL EXPOSURE [None]
  - CONDITION AGGRAVATED [None]
  - EYE IRRITATION [None]
  - EYE SWELLING [None]
  - IMPAIRED WORK ABILITY [None]
  - OCULAR HYPERAEMIA [None]
